FAERS Safety Report 19776124 (Version 2)
Quarter: 2023Q1

REPORT INFORMATION
  Report Type: Report from Study
  Country: US (occurrence: US)
  Receive Date: 20210902
  Receipt Date: 20230309
  Transmission Date: 20230417
  Serious: Yes (Other)
  Sender: FDA-Public Use
  Company Number: US-NOVARTISPH-PHEH2018US052946

PATIENT
  Age: 60 Year
  Sex: Male
  Weight: 120.66 kg

DRUGS (10)
  1. COSENTYX [Suspect]
     Active Substance: SECUKINUMAB
     Indication: Psoriasis
     Dosage: 300 MG, QMO
     Route: 065
     Dates: start: 20150420, end: 20160301
  2. HUMIRA [Concomitant]
     Active Substance: ADALIMUMAB
     Indication: Psoriasis
     Dosage: 40 MG, QW
     Route: 065
     Dates: start: 20180212
  3. METHOTREXATE [Concomitant]
     Active Substance: METHOTREXATE
     Indication: Psoriasis
     Dosage: 25 MG, QW
     Route: 065
     Dates: start: 20160202
  4. SORIATANE [Concomitant]
     Active Substance: ACITRETIN
     Indication: Psoriasis
     Dosage: 25 MG, Q48H
     Route: 065
     Dates: start: 20120229, end: 20181001
  5. MONTELUKAST SODIUM [Concomitant]
     Active Substance: MONTELUKAST SODIUM
     Indication: Product used for unknown indication
     Dosage: UNK
     Route: 065
  6. CYCLOBENZAPRINE [Concomitant]
     Active Substance: CYCLOBENZAPRINE
     Indication: Product used for unknown indication
     Dosage: UNK
     Route: 065
  7. ASPIRIN [Concomitant]
     Active Substance: ASPIRIN
     Indication: Product used for unknown indication
     Dosage: UNK
     Route: 065
  8. FOLIC ACID [Concomitant]
     Active Substance: FOLIC ACID
     Indication: Product used for unknown indication
     Dosage: UNK
     Route: 065
  9. TARGRETIN [Concomitant]
     Active Substance: BEXAROTENE
     Indication: Psoriasis
     Dosage: UNK
     Route: 065
  10. TAZAROTENE [Concomitant]
     Active Substance: TAZAROTENE
     Indication: Psoriasis
     Dosage: UNK UNK, QD
     Route: 065

REACTIONS (5)
  - Basal cell carcinoma [Recovered/Resolved]
  - Squamous cell carcinoma of skin [Recovered/Resolved]
  - Bronchitis [Unknown]
  - Metabolic syndrome [Unknown]
  - Upper respiratory tract infection [Unknown]

NARRATIVE: CASE EVENT DATE: 20150101
